FAERS Safety Report 5003326-6 (Version None)
Quarter: 2006Q2

REPORT INFORMATION
  Report Type: 
  Country: None (occurrence: None)
  Receive Date: 20060511
  Receipt Date: 20060504
  Transmission Date: 20061013
  Serious: Yes (Hospitalization, Disabling, Other)
  Sender: FDA-Public Use
  Company Number: CHWYE532604APR06

PATIENT
  Age: 64 Year
  Sex: Female

DRUGS (17)
  1. EFFEXOR [Suspect]
     Indication: DEPRESSION
     Dosage: 37.5 MG 1X PER 1 DAY ; 75 MG 1X PER 1 DAY ; 37.5 MG 1X PER 1 DAY
     Route: 048
     Dates: start: 20050729, end: 20050802
  2. EFFEXOR [Suspect]
     Indication: DEPRESSION
     Dosage: 37.5 MG 1X PER 1 DAY ; 75 MG 1X PER 1 DAY ; 37.5 MG 1X PER 1 DAY
     Route: 048
     Dates: start: 20050803, end: 20050807
  3. EFFEXOR [Suspect]
     Indication: DEPRESSION
     Dosage: 37.5 MG 1X PER 1 DAY ; 75 MG 1X PER 1 DAY ; 37.5 MG 1X PER 1 DAY
     Route: 048
     Dates: start: 20050808, end: 20050814
  4. NORTRILEN (NORTRIPTYLINE HYDROCHLORIDE) [Suspect]
     Dosage: 125 MG 1X PER 1 DAY ; 150 MG 1X PER 1 DAY ; 25 MG TO 100 MG PER DAY
     Route: 048
     Dates: end: 20050725
  5. NORTRILEN (NORTRIPTYLINE HYDROCHLORIDE) [Suspect]
     Dosage: 125 MG 1X PER 1 DAY ; 150 MG 1X PER 1 DAY ; 25 MG TO 100 MG PER DAY
     Route: 048
     Dates: start: 20050726, end: 20050808
  6. NORTRILEN (NORTRIPTYLINE HYDROCHLORIDE) [Suspect]
     Dosage: 125 MG 1X PER 1 DAY ; 150 MG 1X PER 1 DAY ; 25 MG TO 100 MG PER DAY
     Route: 048
     Dates: start: 20050812
  7. LITHIUM CARBONATE [Suspect]
     Dosage: 675 MG 1X PER 1 DAY ; 900 MG 1X PER 1 DAY ; 450 MG 1X PER 1 DAY ; 675 MG 1X PER 1 DAY
     Route: 048
     Dates: end: 20050803
  8. LITHIUM CARBONATE [Suspect]
     Dosage: 675 MG 1X PER 1 DAY ; 900 MG 1X PER 1 DAY ; 450 MG 1X PER 1 DAY ; 675 MG 1X PER 1 DAY
     Route: 048
     Dates: start: 20050804, end: 20050807
  9. LITHIUM CARBONATE [Suspect]
     Dosage: 675 MG 1X PER 1 DAY ; 900 MG 1X PER 1 DAY ; 450 MG 1X PER 1 DAY ; 675 MG 1X PER 1 DAY
     Route: 048
     Dates: start: 20050813, end: 20050829
  10. LITHIUM CARBONATE [Suspect]
     Dosage: 675 MG 1X PER 1 DAY ; 900 MG 1X PER 1 DAY ; 450 MG 1X PER 1 DAY ; 675 MG 1X PER 1 DAY
     Route: 048
     Dates: start: 20050830
  11. ACCUPRIL [Concomitant]
  12. ZOLPIDEM TARTRATE [Concomitant]
  13. ZYPREXA [Concomitant]
  14. LORAZEPAM [Concomitant]
  15. CITALOPRAM HYDROBROMIDE [Concomitant]
  16. ESCITALOPRAM OXALATE [Concomitant]
  17. ESTRADERM [Concomitant]

REACTIONS (7)
  - AGITATION [None]
  - CONFUSIONAL STATE [None]
  - DRUG INTERACTION [None]
  - DRUG TOXICITY [None]
  - GAIT DISTURBANCE [None]
  - MYOCLONUS [None]
  - URINARY TRACT INFECTION [None]
